FAERS Safety Report 5256675-0 (Version None)
Quarter: 2007Q1

REPORT INFORMATION
  Report Type: 
  Country: None (occurrence: None)
  Receive Date: 20070306
  Receipt Date: 20070222
  Transmission Date: 20070707
  Serious: Yes (Hospitalization)
  Sender: FDA-Public Use
  Company Number: JP-PFIZER INC-2006082789

PATIENT
  Sex: Male
  Weight: 69.3 kg

DRUGS (11)
  1. SU-011,248 [Suspect]
     Indication: RENAL CELL CARCINOMA STAGE UNSPECIFIED
     Route: 048
  2. SU-011,248 [Suspect]
     Dates: start: 20060726, end: 20060822
  3. SU-011,248 [Suspect]
  4. CANDESARTAN CILEXETIL [Concomitant]
     Route: 048
     Dates: start: 20060613, end: 20060828
  5. FLUNITRAZEPAM [Concomitant]
     Route: 048
     Dates: start: 20060622, end: 20060828
  6. BROTIZOLAM [Concomitant]
     Route: 048
     Dates: start: 20060605
  7. ZOPICLONE [Concomitant]
     Route: 048
     Dates: start: 20060613, end: 20060621
  8. DIFLUPREDNATE [Concomitant]
     Route: 061
     Dates: start: 20060616, end: 20060718
  9. SENNA LEAF [Concomitant]
     Route: 048
     Dates: start: 20060612
  10. POSTERISAN FORTE [Concomitant]
     Route: 061
     Dates: start: 20060606, end: 20060919
  11. HYDROCORTISONE [Concomitant]
     Route: 061
     Dates: start: 20060609, end: 20060612

REACTIONS (1)
  - ANAL FISTULA [None]
